FAERS Safety Report 10886913 (Version 2)
Quarter: 2015Q1

REPORT INFORMATION
  Report Type: Spontaneous
  Country: US (occurrence: US)
  Receive Date: 20150304
  Receipt Date: 20150323
  Transmission Date: 20150721
  Serious: No
  Sender: FDA-Public Use
  Company Number: US-PFIZER INC-2015072718

PATIENT
  Age: 66 Year
  Sex: Female
  Weight: 55 kg

DRUGS (14)
  1. ULTRAM [Concomitant]
     Active Substance: TRAMADOL HYDROCHLORIDE
     Indication: PAIN
     Dosage: 100 MG, EVERY 8 (EIGHT) HOURS AS NEEDED
  2. COLACE [Concomitant]
     Active Substance: DOCUSATE SODIUM
     Dosage: 50 MG, 2X/DAY
     Route: 048
  3. LIDODERM [Concomitant]
     Active Substance: LIDOCAINE
     Dosage: UNK
     Dates: start: 20140709
  4. MIRAPEX [Concomitant]
     Active Substance: PRAMIPEXOLE DIHYDROCHLORIDE
     Dosage: 0.125 MG, EVERY EVENING (NIGHTLY)
     Route: 048
  5. PROAIR HFA [Concomitant]
     Active Substance: ALBUTEROL SULFATE
     Dosage: UNK
     Dates: start: 20140123
  6. LYRICA [Suspect]
     Active Substance: PREGABALIN
     Indication: FIBROMYALGIA
     Dosage: 25 MG EVERY MORNING AND 50 MG EVERY EVENING
     Route: 048
     Dates: start: 20150213
  7. PENLAC [Concomitant]
     Active Substance: CICLOPIROX
     Indication: PARONYCHIA
     Dosage: UNK UNK, 1X/DAY
     Dates: start: 20140324
  8. CYTOMEL [Concomitant]
     Active Substance: LIOTHYRONINE SODIUM
     Dosage: 25 ?G, 1X/DAY
     Route: 048
  9. PERCOCET [Concomitant]
     Active Substance: ACETAMINOPHEN\OXYCODONE HYDROCHLORIDE
     Indication: AKATHISIA
     Dosage: UNK, AS NEEDED
  10. ZOSTAVAX [Concomitant]
     Active Substance: VARICELLA-ZOSTER VIRUS STRAIN OKA/MERCK LIVE ANTIGEN
     Dosage: UNK
     Dates: start: 20140910
  11. VITAMIN D3 [Concomitant]
     Active Substance: CHOLECALCIFEROL
     Dosage: 2000 IU,  ONCE DAILY
     Route: 048
  12. VALIUM [Concomitant]
     Active Substance: DIAZEPAM
     Indication: ANXIETY
     Dosage: 2 MG DAILY, AS NEEDED (PRN)
     Route: 048
  13. REQUIP [Concomitant]
     Active Substance: ROPINIROLE HYDROCHLORIDE
     Dosage: 0.25 MG, 2X/DAY
     Route: 048
     Dates: start: 20141120
  14. XANAX [Concomitant]
     Active Substance: ALPRAZOLAM
     Dosage: UNK

REACTIONS (9)
  - Blepharitis [Unknown]
  - Fatigue [Unknown]
  - Neck pain [Unknown]
  - Back pain [Unknown]
  - Musculoskeletal stiffness [Unknown]
  - Paraesthesia [Unknown]
  - Groin pain [Unknown]
  - Burning sensation [Unknown]
  - Erythema of eyelid [Unknown]
